FAERS Safety Report 7541850-2 (Version None)
Quarter: 2011Q2

REPORT INFORMATION
  Report Type: 
  Country: None (occurrence: None)
  Receive Date: 20110606
  Receipt Date: 20110530
  Transmission Date: 20111010
  Serious: Yes (Hospitalization, Other)
  Sender: FDA-Public Use
  Company Number: WAES 1104ESP00032

PATIENT
  Age: 69 Year
  Sex: Male

DRUGS (11)
  1. CAP VORINOSTAT [Suspect]
     Indication: LUNG NEOPLASM MALIGNANT
     Dosage: 400 MG, DAILY, PO
     Route: 048
     Dates: start: 20100426, end: 20110419
  2. DIAZEPAM [Concomitant]
  3. PANTOPRAZOLE [Concomitant]
  4. IBUPROFEN [Concomitant]
  5. NADROPARIN CALCIUM [Concomitant]
  6. AUGMENTIN '125' [Concomitant]
  7. LACTULOSE [Concomitant]
  8. DOMPERIDONE [Concomitant]
  9. ERLOTINIB HYDROCHLORIDE [Suspect]
     Indication: LUNG NEOPLASM MALIGNANT
     Dosage: 150 MG, DAILY, PO
     Route: 048
     Dates: start: 20100426, end: 20110402
  10. ERLOTINIB HYDROCHLORIDE [Suspect]
     Indication: LUNG NEOPLASM MALIGNANT
     Dosage: 150 MG, DAILY, PO
     Route: 048
     Dates: start: 20110412, end: 20110502
  11. ASPIRIN [Concomitant]

REACTIONS (7)
  - PNEUMONIA [None]
  - DYSPNOEA [None]
  - PYREXIA [None]
  - GENERAL PHYSICAL HEALTH DETERIORATION [None]
  - PAIN [None]
  - LUNG DISORDER [None]
  - ASTHENIA [None]
